FAERS Safety Report 20103441 (Version 1)
Quarter: 2021Q4

REPORT INFORMATION
  Report Type: Spontaneous
  Country: GB (occurrence: GB)
  Receive Date: 20211123
  Receipt Date: 20211123
  Transmission Date: 20220303
  Serious: Yes (Hospitalization, Other)
  Sender: FDA-Public Use
  Company Number: GB-PFIZER INC-202101581629

PATIENT
  Age: 64 Year
  Sex: Male

DRUGS (1)
  1. XELJANZ [Suspect]
     Active Substance: TOFACITINIB CITRATE
     Indication: Rheumatoid arthritis
     Dosage: 5 MG, 2X/DAY
     Dates: start: 202101, end: 20210827

REACTIONS (3)
  - Thrombosis [Recovered/Resolved with Sequelae]
  - Wound [Recovered/Resolved with Sequelae]
  - Sensory loss [Unknown]

NARRATIVE: CASE EVENT DATE: 20210827
